FAERS Safety Report 26069050 (Version 1)
Quarter: 2025Q4

REPORT INFORMATION
  Report Type: Spontaneous
  Country: US (occurrence: US)
  Receive Date: 20251120
  Receipt Date: 20251120
  Transmission Date: 20260119
  Serious: Yes (Other)
  Sender: AUROBINDO
  Company Number: US-AUROBINDO-AUR-APL-2025-058054

PATIENT
  Age: 8 Year
  Sex: Female

DRUGS (5)
  1. BETAMETHASONE [Suspect]
     Active Substance: BETAMETHASONE
     Indication: Dermatitis atopic
     Dosage: UNK FOR 3 MONTHS
  2. BETAMETHASONE [Suspect]
     Active Substance: BETAMETHASONE
     Dosage: 0.1 PERCENT
  3. HYDROCORTISONE [Suspect]
     Active Substance: HYDROCORTISONE
     Indication: Product used for unknown indication
     Dosage: UNK
  4. CLOBETASOL 17-BUTYRATE [Suspect]
     Active Substance: CLOBETASOL 17-BUTYRATE
     Indication: Product used for unknown indication
     Dosage: 0.05 PERCENT, TWO TIMES A DAY
     Route: 065
  5. CLOBETASOL 17-BUTYRATE [Suspect]
     Active Substance: CLOBETASOL 17-BUTYRATE
     Dosage: 0.05 PERCENT, DAILY
     Route: 065

REACTIONS (2)
  - Drug ineffective [Unknown]
  - Drug withdrawal syndrome [Recovered/Resolved]
